FAERS Safety Report 7642968-6 (Version None)
Quarter: 2011Q3

REPORT INFORMATION
  Report Type: 
  Country: None (occurrence: None)
  Receive Date: 20110728
  Receipt Date: 20110720
  Transmission Date: 20111222
  Serious: Yes (Other)
  Sender: FDA-Public Use
  Company Number: US-ASTRAZENECA-2008UW08442

PATIENT
  Age: 11387 Day
  Sex: Male
  Weight: 120.2 kg

DRUGS (19)
  1. SEROQUEL [Suspect]
     Indication: SCHIZOPHRENIA
     Dosage: VARIOUS (INCLUDING BUT NOT LIMITED TO 300 MG - 800 MG)
     Route: 048
     Dates: start: 19990101, end: 20030507
  2. SEROQUEL [Suspect]
     Dosage: 100 MG-800 MG
     Route: 048
     Dates: start: 20001129
  3. ZYPREXA [Concomitant]
     Dates: start: 20001013
  4. SEROQUEL [Suspect]
     Indication: PSYCHOTIC DISORDER
     Dosage: VARIOUS (INCLUDING BUT NOT LIMITED TO 300 MG - 800 MG)
     Route: 048
     Dates: start: 19990101, end: 20030507
  5. WELLBUTRINE [Concomitant]
     Dates: start: 20030401
  6. TOPROL-XL [Concomitant]
     Dates: start: 20030404
  7. LIPITOR [Concomitant]
     Dates: start: 20030404
  8. SEROQUEL [Suspect]
     Indication: BIPOLAR DISORDER
     Dosage: VARIOUS (INCLUDING BUT NOT LIMITED TO 300 MG - 800 MG)
     Route: 048
     Dates: start: 19990101, end: 20030507
  9. HALDOL [Concomitant]
     Dosage: 20-40 MG
     Dates: start: 19980817
  10. LASIX [Concomitant]
     Dosage: 40 MG ALTERNATIVE DAYS
     Dates: start: 20030404
  11. SEROQUEL [Suspect]
     Dosage: 100 MG-800 MG
     Route: 048
     Dates: start: 20001129
  12. RISPERDAL [Concomitant]
     Dates: start: 20000101, end: 20010101
  13. THORAZINE [Concomitant]
  14. ATENOLOL [Concomitant]
     Dates: start: 20031121
  15. HYDROCHLOROTHIAZIDE [Concomitant]
     Dates: start: 20030404
  16. SEROQUEL [Suspect]
     Dosage: 100 MG-800 MG
     Route: 048
     Dates: start: 20001129
  17. STELAZINE [Concomitant]
     Dates: start: 19960101, end: 19970101
  18. AVAPRO [Concomitant]
     Dates: start: 20030404
  19. NAVANE [Concomitant]
     Dates: start: 20030404

REACTIONS (9)
  - HYPERTENSION [None]
  - DIABETES MELLITUS [None]
  - BLOOD CHOLESTEROL INCREASED [None]
  - TARDIVE DYSKINESIA [None]
  - EXTRAPYRAMIDAL DISORDER [None]
  - CONVULSION [None]
  - HYPERLIPIDAEMIA [None]
  - CARDIAC DISORDER [None]
  - OBESITY [None]
